FAERS Safety Report 25727165 (Version 1)
Quarter: 2025Q3

REPORT INFORMATION
  Report Type: Spontaneous
  Country: US (occurrence: None)
  Receive Date: 20250825
  Receipt Date: 20250825
  Transmission Date: 20251021
  Serious: Yes (Other)
  Sender: FDA-CTU
  Company Number: None

PATIENT
  Age: 33 Year
  Sex: Female
  Weight: 52.65 kg

DRUGS (1)
  1. SERTRALINE [Suspect]
     Active Substance: SERTRALINE HYDROCHLORIDE
     Indication: Depression
     Route: 048

REACTIONS (10)
  - Withdrawal syndrome [None]
  - Insomnia [None]
  - Tremor [None]
  - Decreased appetite [None]
  - Anxiety [None]
  - Panic reaction [None]
  - Trismus [None]
  - Hyperacusis [None]
  - Cognitive disorder [None]
  - Intentional product use issue [None]

NARRATIVE: CASE EVENT DATE: 20220719
